FAERS Safety Report 6330056-0 (Version None)
Quarter: 2009Q3

REPORT INFORMATION
  Report Type: 
  Country: None (occurrence: None)
  Receive Date: 20090825
  Receipt Date: 20090818
  Transmission Date: 20100115
  Serious: Yes (Life-Threatening)
  Sender: FDA-Public Use
  Company Number: 2009AL005438

PATIENT
  Sex: Male

DRUGS (2)
  1. DOUBLE ANTIBITOIC OINTMENT (POLYMIXIN B SULFATE-BACITRACIN ZINC) (ALPH [Suspect]
     Indication: POSTOPERATIVE CARE
     Dosage: X1; TOP
     Route: 061
     Dates: start: 20090624, end: 20090624
  2. DOUBLE ANTIBITOIC OINTMENT (POLYMIXIN B SULFATE-BACITRACIN ZINC) (ALPH [Suspect]
     Indication: SKIN PAPILLOMA
     Dosage: X1; TOP
     Route: 061
     Dates: start: 20090624, end: 20090624

REACTIONS (8)
  - ALTERED STATE OF CONSCIOUSNESS [None]
  - DIZZINESS [None]
  - DYSPNOEA [None]
  - PRURITUS GENERALISED [None]
  - SENSORY LOSS [None]
  - SKIN DISCOLOURATION [None]
  - SPEECH DISORDER [None]
  - VISUAL IMPAIRMENT [None]
